FAERS Safety Report 5612216-7 (Version None)
Quarter: 2008Q1

REPORT INFORMATION
  Report Type: 
  Country: None (occurrence: None)
  Receive Date: 20080128
  Receipt Date: 20080114
  Transmission Date: 20080703
  Serious: Yes (Disabling)
  Sender: FDA-Public Use
  Company Number: 2008000095

PATIENT
  Age: 76 Year
  Sex: Female

DRUGS (1)
  1. TARCEVA [Suspect]
     Indication: LYMPHOMA
     Dosage: ORAL
     Route: 048
     Dates: start: 20070905, end: 20071115

REACTIONS (3)
  - BLINDNESS UNILATERAL [None]
  - CORNEAL PERFORATION [None]
  - ULCERATIVE KERATITIS [None]
